FAERS Safety Report 25379508 (Version 1)
Quarter: 2025Q2

REPORT INFORMATION
  Report Type: Report from Study
  Country: US (occurrence: US)
  Receive Date: 20250530
  Receipt Date: 20250530
  Transmission Date: 20250717
  Serious: Yes (Other)
  Sender: PFIZER
  Company Number: US-PFIZER INC-PV202500063004

PATIENT

DRUGS (3)
  1. SIROLIMUS [Suspect]
     Active Substance: SIROLIMUS
     Indication: Liver transplant
  2. PREDNISONE [Concomitant]
     Active Substance: PREDNISONE
     Indication: Liver transplant
  3. TACROLIMUS [Concomitant]
     Active Substance: TACROLIMUS
     Indication: Liver transplant
     Dosage: 0.05-0.1 MG/KG, 2X/DAY, EVERY 12 H
     Route: 048

REACTIONS (1)
  - Wound dehiscence [Unknown]
